FAERS Safety Report 19703610 (Version 1)
Quarter: 2021Q3

REPORT INFORMATION
  Report Type: Spontaneous
  Country: US (occurrence: US)
  Receive Date: 20210816
  Receipt Date: 20210816
  Transmission Date: 20211014
  Serious: Yes (Life-Threatening, Hospitalization)
  Sender: FDA-Public Use
  Company Number: US-LUPIN PHARMACEUTICALS INC.-2021-14888

PATIENT
  Age: 71 Year
  Sex: Male

DRUGS (9)
  1. CALCIUM ACETATE. [Suspect]
     Active Substance: CALCIUM ACETATE
     Indication: VASOPLEGIA SYNDROME
     Dosage: UNK, CALCIUM?CHLORIDE
     Route: 065
  2. VASOPRESSIN. [Suspect]
     Active Substance: VASOPRESSIN
     Dosage: UNK (0.06 UNITS/MIN INFUSION)
     Route: 065
  3. EPINEPHRINE. [Suspect]
     Active Substance: EPINEPHRINE
     Indication: VASOPLEGIA SYNDROME
     Dosage: 20 MILLIGRAM (REQUIRED BOLUSES OF VASOPRESSOR BEFORE INITIATION OF CPB FOR A TOTAL OF 20 MG OF EPINE
     Route: 065
  4. NOREPINEPHRINE. [Suspect]
     Active Substance: NOREPINEPHRINE
     Indication: VASOPLEGIA SYNDROME
     Dosage: 6 MICROGRAM/MIN
     Route: 065
  5. VASOPRESSIN. [Suspect]
     Active Substance: VASOPRESSIN
     Indication: VASOPLEGIA SYNDROME
     Dosage: UNK (HE REQUIRED 2 UNITS OF VASOPRESSIN, BOLUS)
     Route: 065
  6. EPINEPHRINE. [Suspect]
     Active Substance: EPINEPHRINE
     Dosage: 3 MCG/MIN INFUSION
     Route: 065
  7. VASOPRESSIN. [Suspect]
     Active Substance: VASOPRESSIN
     Dosage: UNK (0.04 UNITS/MIN)
     Route: 065
  8. PHENYLEPHRINE [Suspect]
     Active Substance: PHENYLEPHRINE HYDROCHLORIDE
     Indication: VASOPLEGIA SYNDROME
     Dosage: 200 MICROGRAM (HE REQUIRED BOLUSES OF VASOPRESSOR BEFORE INITIATION OF CPB FOR A TOTAL 200 MCG OF PH
     Route: 065
  9. VASOPRESSIN. [Suspect]
     Active Substance: VASOPRESSIN
     Dosage: UNK (0.08 UNITS/MIN INFUSION)
     Route: 065

REACTIONS (2)
  - Drug ineffective for unapproved indication [Unknown]
  - Off label use [None]
